FAERS Safety Report 5417456-8 (Version None)
Quarter: 2007Q3

REPORT INFORMATION
  Report Type: 
  Country: None (occurrence: None)
  Receive Date: 20070816
  Receipt Date: 20070802
  Transmission Date: 20080115
  Serious: Yes (Hospitalization)
  Sender: FDA-Public Use
  Company Number: US-GILEAD-2007-0013052

PATIENT
  Sex: Female
  Weight: 69.008 kg

DRUGS (1)
  1. LETAIRIS [Suspect]
     Dates: start: 20070701

REACTIONS (1)
  - FLUID OVERLOAD [None]
